FAERS Safety Report 4505254-9 (Version None)
Quarter: 2004Q4

REPORT INFORMATION
  Report Type: 
  Country: None (occurrence: None)
  Receive Date: 20041119
  Receipt Date: 20041109
  Transmission Date: 20050328
  Serious: Yes (Death, Life-Threatening, Hospitalization)
  Sender: FDA-Public Use
  Company Number: BE-JNJFOC-20041007347

PATIENT
  Sex: Female
  Weight: 47 kg

DRUGS (6)
  1. DURAGESIC [Suspect]
     Route: 062
  2. DURAGESIC [Suspect]
     Indication: BONE PAIN
     Route: 062
  3. PARIET [Suspect]
     Indication: DRUG USE FOR UNKNOWN INDICATION
  4. VELCADE [Suspect]
     Indication: DRUG USE FOR UNKNOWN INDICATION
     Route: 042
  5. SODIUM BICARBONATE [Concomitant]
  6. ZOMETA [Concomitant]

REACTIONS (13)
  - ACTIVATED PARTIAL THROMBOPLASTIN TIME PROLONGED [None]
  - ANOREXIA [None]
  - BLOOD FIBRINOGEN INCREASED [None]
  - DRUG INTERACTION [None]
  - DYSPNOEA [None]
  - FATIGUE [None]
  - HAEMATOCRIT DECREASED [None]
  - HAEMATOMA [None]
  - HAEMOGLOBIN DECREASED [None]
  - HAEMORRHAGE [None]
  - PLATELET COUNT DECREASED [None]
  - WEIGHT DECREASED [None]
  - WHITE BLOOD CELL COUNT INCREASED [None]
